FAERS Safety Report 21849448 (Version 1)
Quarter: 2023Q1

REPORT INFORMATION
  Report Type: Spontaneous
  Country: US (occurrence: None)
  Receive Date: 20230111
  Receipt Date: 20230111
  Transmission Date: 20230417
  Serious: Yes (Other)
  Sender: FDA-Public Use
  Company Number: None

PATIENT
  Age: 39 Year
  Sex: Female
  Weight: 72 kg

DRUGS (5)
  1. PROGESTERONE\TOCOPHEROL [Suspect]
     Active Substance: PROGESTERONE\TOCOPHEROL
     Indication: Hormone replacement therapy
     Dosage: OTHER FREQUENCY : 1-10 TIMES A DAY;?
     Route: 060
     Dates: start: 20221201, end: 20221210
  2. BIKTARVY [Concomitant]
     Active Substance: BICTEGRAVIR SODIUM\EMTRICITABINE\TENOFOVIR ALAFENAMIDE FUMARATE
  3. ZINC [Concomitant]
     Active Substance: ZINC
  4. VITAMIN D [Concomitant]
     Active Substance: VITAMIN D NOS
  5. DEL IMMUNE [Concomitant]

REACTIONS (3)
  - Palpitations [None]
  - Flushing [None]
  - Anxiety [None]

NARRATIVE: CASE EVENT DATE: 20221201
